FAERS Safety Report 10958918 (Version 1)
Quarter: 2015Q1

REPORT INFORMATION
  Report Type: Spontaneous
  Country: FR (occurrence: FR)
  Receive Date: 20150327
  Receipt Date: 20150327
  Transmission Date: 20150721
  Serious: Yes (Hospitalization)
  Sender: FDA-Public Use
  Company Number: FR-ROCHE-1556579

PATIENT
  Age: 79 Year
  Sex: Male

DRUGS (9)
  1. KARDEGIC [Concomitant]
     Active Substance: ASPIRIN LYSINE
     Dosage: FOR A LONG TIME
     Route: 048
  2. TOPALGIC LP [Concomitant]
     Active Substance: TRAMADOL
     Dosage: FOR A LONG TIME
     Route: 048
  3. MABTHERA [Suspect]
     Active Substance: RITUXIMAB
     Indication: RHEUMATOID ARTHRITIS
     Route: 041
     Dates: start: 20141212, end: 20141212
  4. DOLIPRANE [Concomitant]
     Active Substance: ACETAMINOPHEN
     Route: 048
     Dates: start: 20141212, end: 20141212
  5. INEXIUM [Concomitant]
     Active Substance: ESOMEPRAZOLE
     Dosage: FOR A LONG TIME
     Route: 048
  6. CETIRIZINE [Concomitant]
     Active Substance: CETIRIZINE HYDROCHLORIDE
     Route: 048
     Dates: start: 20141212, end: 20141212
  7. SOLU-MEDROL [Concomitant]
     Active Substance: METHYLPREDNISOLONE SODIUM SUCCINATE
     Route: 042
     Dates: start: 20141212, end: 20141212
  8. SALAZOPYRINE [Concomitant]
     Active Substance: SULFASALAZINE
     Dosage: FOR A LONG TIME
     Route: 048
  9. CORTANCYL [Concomitant]
     Active Substance: PREDNISONE
     Dosage: FOR A LONG TIME
     Route: 048

REACTIONS (1)
  - Pulmonary embolism [Recovering/Resolving]

NARRATIVE: CASE EVENT DATE: 20141213
